FAERS Safety Report 6388856-7 (Version None)
Quarter: 2009Q4

REPORT INFORMATION
  Report Type: 
  Country: None (occurrence: None)
  Receive Date: 20091005
  Receipt Date: 20090925
  Transmission Date: 20100525
  Serious: Yes (Other)
  Sender: FDA-Public Use
  Company Number: BR-ABBOTT-09P-020-0599419-00

PATIENT
  Sex: Female

DRUGS (1)
  1. HUMIRA [Suspect]
     Indication: RHEUMATOID ARTHRITIS
     Dosage: 1 INJECTION (40MG) EVERY 14 DAYS
     Dates: start: 20090813, end: 20090901

REACTIONS (4)
  - EYE INFECTION [None]
  - EYE IRRITATION [None]
  - EYE PAIN [None]
  - OCULAR HYPERAEMIA [None]
